FAERS Safety Report 11567081 (Version 1)
Quarter: 2015Q3

REPORT INFORMATION
  Report Type: Spontaneous
  Country: US (occurrence: US)
  Receive Date: 20150916
  Receipt Date: 20150916
  Transmission Date: 20151125
  Serious: No
  Sender: FDA-Public Use
  Company Number: US-ELI_LILLY_AND_COMPANY-US200907001302

PATIENT
  Sex: Female

DRUGS (1)
  1. FORTEO [Suspect]
     Active Substance: TERIPARATIDE
     Indication: OSTEOPOROSIS
     Dosage: UNK, UNK
     Dates: start: 20090613, end: 20090716

REACTIONS (9)
  - Dizziness [Recovering/Resolving]
  - Head discomfort [Recovered/Resolved]
  - Platelet count increased [Unknown]
  - Coeliac disease [Not Recovered/Not Resolved]
  - Nausea [Unknown]
  - Sleep disorder [Recovering/Resolving]
  - Thinking abnormal [Recovered/Resolved]
  - Injection site bruising [Recovered/Resolved]
  - Asthenia [Recovering/Resolving]

NARRATIVE: CASE EVENT DATE: 2009
